FAERS Safety Report 4678543-5 (Version None)
Quarter: 2005Q2

REPORT INFORMATION
  Report Type: 
  Country: None (occurrence: None)
  Receive Date: 20050601
  Receipt Date: 20050526
  Transmission Date: 20051028
  Serious: Yes (Life-Threatening, Disabling)
  Sender: FDA-Public Use
  Company Number: US-MERCK-0505USA03200

PATIENT
  Age: 76 Year
  Sex: Female

DRUGS (13)
  1. FOSAMAX [Suspect]
     Indication: BONE DENSITY DECREASED
     Route: 048
     Dates: start: 20050523
  2. ATENOLOL [Concomitant]
     Route: 065
  3. WARFARIN [Concomitant]
     Route: 065
  4. CELEBREX [Concomitant]
     Route: 065
  5. ISOSORBIDE [Concomitant]
     Route: 065
  6. NEXIUM [Concomitant]
     Route: 065
  7. ATACAND [Concomitant]
     Route: 065
  8. ASPIRIN [Concomitant]
     Route: 065
  9. NORTRIPTYLINE HYDROCHLORIDE [Concomitant]
     Route: 065
  10. CALCIUM (UNSPECIFIED) [Concomitant]
     Route: 065
  11. VITAMIN D (UNSPECIFIED) [Concomitant]
     Route: 065
  12. FOLIC ACID [Concomitant]
     Route: 065
  13. CRESTOR [Concomitant]
     Route: 065

REACTIONS (4)
  - ANXIETY [None]
  - DISORIENTATION [None]
  - DIZZINESS [None]
  - FATIGUE [None]
